FAERS Safety Report 4634730-3 (Version None)
Quarter: 2005Q2

REPORT INFORMATION
  Report Type: 
  Country: None (occurrence: None)
  Receive Date: 20050413
  Receipt Date: 20050413
  Transmission Date: 20051028
  Serious: Yes (Death)
  Sender: FDA-Public Use
  Company Number: None

PATIENT
  Age: 52 Year
  Sex: Female
  Weight: 66.2252 kg

DRUGS (3)
  1. WELLBUTRIN XL [Suspect]
     Indication: DEPRESSION
     Dosage: 450 MG 1X DAILY
     Dates: start: 20040915, end: 20041117
  2. WELLBUTRIN XL [Suspect]
     Indication: DEPRESSION
     Dosage: 450 MG 1X DAILY
     Dates: start: 20041117, end: 20050119
  3. WELLBUTRIN XL [Suspect]
     Indication: DEPRESSION
     Dosage: 450 MG 1X DAILY
     Dates: start: 20050119, end: 20050228

REACTIONS (2)
  - CONVULSION [None]
  - DROWNING [None]
